FAERS Safety Report 4878858-1 (Version None)
Quarter: 2005Q4

REPORT INFORMATION
  Report Type: 
  Country: None (occurrence: None)
  Receive Date: 20051209
  Receipt Date: 20050616
  Transmission Date: 20060501
  Serious: Yes (Hospitalization, Other)
  Sender: FDA-Public Use
  Company Number: USA-2003-0008754

PATIENT
  Age: 50 Year
  Sex: Male
  Weight: 98.4 kg

DRUGS (19)
  1. OXYCONTIN [Suspect]
     Indication: PAIN
     Dosage: 20 MG
     Dates: start: 19990706, end: 20010601
  2. NEURONTIN [Concomitant]
  3. LORTAB [Concomitant]
  4. CORTEF [Concomitant]
  5. CORDELL [Concomitant]
  6. TYLOX [Concomitant]
  7. ROXICODONE [Concomitant]
  8. TESTOSTERONE [Concomitant]
  9. PHENERGAN SPECIA [Concomitant]
  10. ELAVIL [Concomitant]
  11. LOPID [Concomitant]
  12. ALTACE [Concomitant]
  13. ZYPREXA [Concomitant]
  14. ASPIRIN [Concomitant]
  15. ACTOS [Concomitant]
  16. PERCODAN [Concomitant]
  17. DELATESTRYL [Concomitant]
  18. METHADONE [Concomitant]
  19. DURAGESIC-100 [Concomitant]

REACTIONS (29)
  - ANXIETY [None]
  - CELLULITIS [None]
  - CHEST PAIN [None]
  - CONDITION AGGRAVATED [None]
  - CONSTIPATION [None]
  - DEPRESSION [None]
  - DIARRHOEA [None]
  - DRUG DEPENDENCE [None]
  - DRUG INEFFECTIVE [None]
  - DRUG TOLERANCE [None]
  - DRUG WITHDRAWAL SYNDROME [None]
  - FEELING JITTERY [None]
  - GAIT DISTURBANCE [None]
  - HEADACHE [None]
  - HYPERHIDROSIS [None]
  - INADEQUATE ANALGESIA [None]
  - INSOMNIA [None]
  - IRRITABILITY [None]
  - NAUSEA [None]
  - OEDEMA PERIPHERAL [None]
  - ORTHOSTATIC HYPOTENSION [None]
  - PAIN [None]
  - PAIN IN EXTREMITY [None]
  - PRURITUS [None]
  - PYREXIA [None]
  - RASH PRURITIC [None]
  - TREMOR [None]
  - VOMITING [None]
  - WEIGHT DECREASED [None]
